FAERS Safety Report 25221847 (Version 1)
Quarter: 2025Q2

REPORT INFORMATION
  Report Type: Spontaneous
  Country: PT (occurrence: PT)
  Receive Date: 20250421
  Receipt Date: 20250421
  Transmission Date: 20250716
  Serious: Yes (Other)
  Sender: ORGANON
  Company Number: PT-ORGANON-O2504PRT001740

PATIENT
  Age: 27 Year
  Sex: Female

DRUGS (1)
  1. ETONOGESTREL [Suspect]
     Active Substance: ETONOGESTREL
     Indication: Contraception
     Route: 059
     Dates: start: 202210

REACTIONS (4)
  - Ectopic pregnancy with contraceptive device [Recovered/Resolved]
  - Unintended pregnancy [Recovered/Resolved]
  - Abortion of ectopic pregnancy [Unknown]
  - Anaemia [Not Recovered/Not Resolved]

NARRATIVE: CASE EVENT DATE: 20250101
